FAERS Safety Report 23097444 (Version 1)
Quarter: 2023Q4

REPORT INFORMATION
  Report Type: Spontaneous
  Country: US (occurrence: US)
  Receive Date: 20231023
  Receipt Date: 20231023
  Transmission Date: 20240109
  Serious: Yes (Hospitalization, Other)
  Sender: FDA-Public Use
  Company Number: US-ALEMBIC PHARMACUETICALS LIMITED-2023SCAL000929

PATIENT

DRUGS (2)
  1. LAMOTRIGINE [Suspect]
     Active Substance: LAMOTRIGINE
     Indication: Anxiety
     Dosage: UNK
     Route: 065
  2. LAMOTRIGINE [Suspect]
     Active Substance: LAMOTRIGINE
     Indication: Depression

REACTIONS (13)
  - Disseminated intravascular coagulation [Recovering/Resolving]
  - Multiple organ dysfunction syndrome [Recovering/Resolving]
  - Headache [Recovering/Resolving]
  - Malaise [Recovering/Resolving]
  - Pyrexia [Recovering/Resolving]
  - Periorbital oedema [Recovering/Resolving]
  - Lung opacity [Recovering/Resolving]
  - Haemophagocytic lymphohistiocytosis [Recovering/Resolving]
  - Blood fibrinogen decreased [Recovering/Resolving]
  - Chemokine increased [Recovering/Resolving]
  - Meningitis aseptic [Recovering/Resolving]
  - Rash erythematous [Recovering/Resolving]
  - Rash morbilliform [Recovering/Resolving]
